FAERS Safety Report 7151319-5 (Version None)
Quarter: 2010Q4

REPORT INFORMATION
  Report Type: 
  Country: None (occurrence: None)
  Receive Date: 20101126
  Receipt Date: 20101117
  Transmission Date: 20110411
  Serious: Yes (Death)
  Sender: FDA-Public Use
  Company Number: 2010110041

PATIENT
  Age: 47 Year
  Sex: Male

DRUGS (5)
  1. ONSOLIS [Suspect]
     Indication: CANCER PAIN
     Dosage: TO BE TITRATED UP TO 4-200 MCG/DOSE (UP TO 4 TIMES DAILY), BU; (400 MCG, Q 6 HOURS, PRN), BU
     Route: 002
     Dates: start: 20100805, end: 20100824
  2. ONSOLIS [Suspect]
     Indication: CANCER PAIN
     Dosage: TO BE TITRATED UP TO 4-200 MCG/DOSE (UP TO 4 TIMES DAILY), BU; (400 MCG, Q 6 HOURS, PRN), BU
     Route: 002
     Dates: start: 20100825, end: 20101101
  3. ONSOLIS [Suspect]
  4. PERCOCET [Concomitant]
  5. DURAGESIC-100 [Concomitant]

REACTIONS (1)
  - DEATH [None]
